FAERS Safety Report 5788047-4 (Version None)
Quarter: 2008Q2

REPORT INFORMATION
  Report Type: 
  Country: None (occurrence: None)
  Receive Date: 20080625
  Receipt Date: 20080623
  Transmission Date: 20081010
  Serious: Yes (Life-Threatening)
  Sender: FDA-Public Use
  Company Number: AU-BAYER-200820871GPV

PATIENT
  Age: 19 Year
  Sex: Male

DRUGS (1)
  1. MAGNEVIST [Suspect]
     Indication: NUCLEAR MAGNETIC RESONANCE IMAGING
     Dosage: TOTAL DAILY DOSE: 15 ML
     Route: 040
     Dates: start: 20080620, end: 20080620

REACTIONS (8)
  - BLOOD PRESSURE SYSTOLIC INCREASED [None]
  - MOUTH ULCERATION [None]
  - PELVIC PAIN [None]
  - PRURITUS [None]
  - SKIN BURNING SENSATION [None]
  - TACHYCARDIA [None]
  - URTICARIA [None]
  - VOMITING [None]
